FAERS Safety Report 5386180-2 (Version None)
Quarter: 2007Q3

REPORT INFORMATION
  Report Type: 
  Country: None (occurrence: None)
  Receive Date: 20070710
  Receipt Date: 20070710
  Transmission Date: 20080115
  Serious: Yes (Death)
  Sender: FDA-Public Use
  Company Number: None

PATIENT
  Age: 50 Year
  Sex: Male
  Weight: 70.7611 kg

DRUGS (2)
  1. EFAVIRENZ [Suspect]
     Indication: HIV INFECTION
     Dosage: 600MG DAILY PO
     Route: 048
     Dates: start: 20070321, end: 20070512
  2. SULFAMETHOXAZOLE AND TRIMETHOPRIM [Suspect]
     Indication: ANTIFUNGAL PROPHYLAXIS
     Dosage: 800/160MG DAILY PO
     Route: 048
     Dates: start: 20070321, end: 20070510

REACTIONS (5)
  - CARDIAC ARREST [None]
  - DIARRHOEA [None]
  - HEPATIC FAILURE [None]
  - METABOLIC DISORDER [None]
  - STEVENS-JOHNSON SYNDROME [None]
